FAERS Safety Report 24696250 (Version 1)
Quarter: 2024Q4

REPORT INFORMATION
  Report Type: Other
  Country: CN (occurrence: CN)
  Receive Date: 20241204
  Receipt Date: 20241204
  Transmission Date: 20250115
  Serious: Yes (Other)
  Sender: JIANGSU HENGRUI MEDICINE CO., LTD.
  Company Number: CN-Jiangsu Hengrui Medicine Co., Ltd.-2166458

PATIENT
  Age: 65 Year
  Sex: Female
  Weight: 40 kg

DRUGS (1)
  1. CASPOFUNGIN ACETATE [Suspect]
     Active Substance: CASPOFUNGIN ACETATE
     Indication: Candida test positive
     Dates: start: 20241115, end: 20241115

REACTIONS (1)
  - Tic [Recovered/Resolved]

NARRATIVE: CASE EVENT DATE: 20241115
